FAERS Safety Report 23697340 (Version 2)
Quarter: 2024Q2

REPORT INFORMATION
  Report Type: Spontaneous
  Country: FR (occurrence: FR)
  Receive Date: 20240402
  Receipt Date: 20240531
  Transmission Date: 20240716
  Serious: Yes (Hospitalization)
  Sender: FDA-Public Use
  Company Number: FR-AFSSAPS-RS2024000239

PATIENT
  Age: 28 Year
  Sex: Female

DRUGS (3)
  1. REBIF [Suspect]
     Active Substance: INTERFERON BETA-1A
     Indication: Multiple sclerosis
     Dosage: 44 MG 3 FOIS PAR SEMAINE
     Route: 058
     Dates: end: 20240305
  2. PERINDOPRIL [Concomitant]
     Active Substance: PERINDOPRIL
  3. AMLODIPINE BESYLATE [Concomitant]
     Active Substance: AMLODIPINE BESYLATE

REACTIONS (2)
  - Glomerulonephritis membranoproliferative [Not Recovered/Not Resolved]
  - Thrombotic microangiopathy [Not Recovered/Not Resolved]

NARRATIVE: CASE EVENT DATE: 20240201
